FAERS Safety Report 10168003 (Version 2)
Quarter: 2014Q2

REPORT INFORMATION
  Report Type: Spontaneous
  Country: JP (occurrence: JP)
  Receive Date: 20140512
  Receipt Date: 20140605
  Transmission Date: 20141212
  Serious: Yes (Death, Other)
  Sender: FDA-Public Use
  Company Number: PHHY2014JP054677

PATIENT
  Age: 76 Year
  Sex: Male

DRUGS (7)
  1. BORTEZOMIB [Suspect]
     Indication: WALDENSTROM^S MACROGLOBULINAEMIA
     Dosage: 1 MG/M2, UNK
     Route: 058
  2. DEXAMETHASONE [Suspect]
     Indication: WALDENSTROM^S MACROGLOBULINAEMIA
     Dosage: 40 MG/BODY
     Route: 042
  3. MEROPENEM [Suspect]
     Indication: SEPTIC SHOCK
     Dosage: 1 G, UNK
     Route: 042
  4. MEROPENEM [Suspect]
     Indication: NECROTISING FASCIITIS
  5. VANCOMYCIN [Suspect]
     Indication: SEPTIC SHOCK
     Dosage: 1 G, UNK
     Route: 042
  6. VANCOMYCIN [Suspect]
     Indication: NECROTISING FASCIITIS
  7. RITUXIMAB [Concomitant]
     Indication: WALDENSTROM^S MACROGLOBULINAEMIA
     Dosage: 375 MG/M2, ONCE/SINGLE ON DAY 19
     Route: 042

REACTIONS (14)
  - Necrotising fasciitis [Fatal]
  - Bacteraemia [Fatal]
  - Septic shock [Fatal]
  - Disease progression [Fatal]
  - Pain in extremity [Fatal]
  - Enterobacter infection [Fatal]
  - White blood cell count increased [Fatal]
  - Blood pressure decreased [Fatal]
  - Heart rate increased [Fatal]
  - Pyrexia [Fatal]
  - Peripheral swelling [Fatal]
  - Klebsiella test positive [Fatal]
  - Inflammatory bowel disease [Unknown]
  - Diarrhoea [Unknown]
